FAERS Safety Report 9262415 (Version 3)
Quarter: 2014Q2

REPORT INFORMATION
  Report Type: Report from Study
  Country: FR (occurrence: FR)
  Receive Date: 20130430
  Receipt Date: 20140520
  Transmission Date: 20141212
  Serious: Yes (Hospitalization)
  Sender: FDA-Public Use
  Company Number: FR-009507513-1304FRA013842

PATIENT
  Sex: Female

DRUGS (8)
  1. MK-3034 [Suspect]
     Indication: HEPATITIS C
     Dosage: 2400 MG, UNK
     Route: 048
     Dates: start: 20121113, end: 20121201
  2. PEGINTERFERON ALFA-2A [Suspect]
     Indication: HEPATITIS C
     Dosage: 180 MICROGRAM, QD
     Route: 058
     Dates: start: 20121016, end: 20121201
  3. RIBAVIRIN [Suspect]
     Indication: HEPATITIS C
     Dosage: 800 MG, QD
     Route: 048
     Dates: start: 20121016, end: 20121201
  4. NOCTAMIDE [Concomitant]
     Indication: INSOMNIA
     Dosage: 1 MG, QD
     Route: 048
  5. EXFORGE [Concomitant]
     Indication: HYPERTENSION
     Route: 048
  6. LEVOTHYROX [Concomitant]
     Indication: THYROIDITIS
     Dosage: 37 MICROGRAM, QD
     Route: 048
  7. DAFALGAN [Concomitant]
     Indication: HEADACHE
     Dosage: 1 DF, PRN
     Route: 048
     Dates: start: 20121106
  8. DEROXAT [Concomitant]
     Indication: DEPRESSION
     Dosage: UNK
     Route: 048
     Dates: start: 20121106

REACTIONS (3)
  - Palpitations [Recovered/Resolved]
  - Dyspnoea [Recovered/Resolved]
  - Asthenia [Recovered/Resolved]
